FAERS Safety Report 18892740 (Version 1)
Quarter: 2021Q1

REPORT INFORMATION
  Report Type: Spontaneous
  Country: US (occurrence: US)
  Receive Date: 20210215
  Receipt Date: 20210215
  Transmission Date: 20210420
  Serious: No
  Sender: FDA-Public Use
  Company Number: US-SA-2021SA051535

PATIENT
  Sex: Male

DRUGS (1)
  1. DUPIXENT [Suspect]
     Active Substance: DUPILUMAB
     Indication: ILL-DEFINED DISORDER
     Route: 058

REACTIONS (4)
  - Skin exfoliation [Unknown]
  - Skin fissures [Unknown]
  - Product use in unapproved indication [Unknown]
  - Pruritus [Unknown]
